FAERS Safety Report 4715318-2 (Version None)
Quarter: 2005Q3

REPORT INFORMATION
  Report Type: 
  Country: None (occurrence: None)
  Receive Date: 20050715
  Receipt Date: 20050707
  Transmission Date: 20060218
  Serious: Yes (Other)
  Sender: FDA-Public Use
  Company Number: BE-ABBOTT-05P-013-0305152-00

PATIENT
  Age: 32 Year
  Sex: Female

DRUGS (7)
  1. REMIFENTANIL [Suspect]
     Indication: SEDATION
     Route: 042
  2. REMIFENTANIL [Suspect]
     Route: 042
  3. REMIFENTANIL [Suspect]
     Route: 042
  4. MIDAZOLAM HCL [Concomitant]
     Indication: ANXIETY
     Dosage: 10 MG/HOUR
     Route: 042
  5. PROPOFOL [Concomitant]
     Indication: SEDATION
     Dosage: 120 MG/HOUR
  6. PROPOFOL [Concomitant]
     Dosage: 200 MG/HOUR
  7. MORPHINE [Concomitant]
     Indication: DRUG USE FOR UNKNOWN INDICATION
     Route: 042

REACTIONS (1)
  - DRUG WITHDRAWAL SYNDROME [None]
